FAERS Safety Report 13176547 (Version 3)
Quarter: 2017Q2

REPORT INFORMATION
  Report Type: Report from Study
  Country: None (occurrence: BR)
  Receive Date: 20170201
  Receipt Date: 20170421
  Transmission Date: 20170830
  Serious: Yes (Other)
  Sender: FDA-Public Use
  Company Number: BR-ABBVIE-17P-020-1857505-00

PATIENT
  Sex: Female
  Weight: 48 kg

DRUGS (8)
  1. PHENYTOIN. [Concomitant]
     Active Substance: PHENYTOIN
     Indication: EPILEPSY
     Route: 048
  2. CARBAMAZEPINE. [Concomitant]
     Active Substance: CARBAMAZEPINE
     Indication: CONVULSION PROPHYLAXIS
     Route: 048
  3. TRAMAL [Concomitant]
     Active Substance: TRAMADOL
     Indication: PAIN
     Route: 048
     Dates: start: 2006
  4. DIPYRONE [Concomitant]
     Active Substance: DIPYRONE
     Indication: PAIN
     Route: 048
     Dates: start: 2006
  5. HUMIRA [Suspect]
     Active Substance: ADALIMUMAB
     Dosage: LOADING DOSE (WEEK 2)
     Route: 058
  6. HUMIRA [Suspect]
     Active Substance: ADALIMUMAB
     Indication: CROHN^S DISEASE
     Dosage: LOADING DOSE (WEEK ZERO)
     Route: 058
     Dates: start: 20091002, end: 20091002
  7. PHENOBARBITAL. [Concomitant]
     Active Substance: PHENOBARBITAL
     Indication: CONVULSION PROPHYLAXIS
     Route: 048
  8. HUMIRA [Suspect]
     Active Substance: ADALIMUMAB
     Dosage: MAINTENANCE DOSE
     Route: 058

REACTIONS (9)
  - Depression [Not Recovered/Not Resolved]
  - Weight increased [Not Recovered/Not Resolved]
  - Intertrigo [Not Recovered/Not Resolved]
  - Drug effect incomplete [Unknown]
  - Leishmaniasis [Not Recovered/Not Resolved]
  - Malaise [Not Recovered/Not Resolved]
  - Ear infection [Unknown]
  - Psoriasis [Not Recovered/Not Resolved]
  - Wound secretion [Unknown]

NARRATIVE: CASE EVENT DATE: 2012
